FAERS Safety Report 9443470 (Version 1)
Quarter: 2013Q3

REPORT INFORMATION
  Report Type: Spontaneous
  Country: DE (occurrence: DE)
  Receive Date: 20130806
  Receipt Date: 20130806
  Transmission Date: 20140515
  Serious: Yes (Other)
  Sender: FDA-Public Use
  Company Number: DE-EISAI INC-E2007-01269-SPO-DE

PATIENT
  Age: 57 Year
  Sex: Male
  Weight: 90 kg

DRUGS (7)
  1. FYCOMPA (PERAMPANEL) [Suspect]
     Indication: EPILEPSY
     Dosage: UNKNOWN
     Route: 048
  2. FYCOMPA (PERAMPANEL) [Suspect]
     Route: 048
     Dates: end: 2013
  3. FYCOMPA (PERAMPANEL) [Suspect]
     Route: 048
     Dates: start: 2013, end: 2013
  4. LAMOTRIGIN [Concomitant]
     Indication: EPILEPSY
     Route: 048
  5. PANTOZOL [Concomitant]
     Route: 048
  6. CARMEN [Concomitant]
     Indication: HYPERTENSION
     Route: 048
  7. LOSARTAN [Concomitant]
     Indication: HYPERTENSION
     Route: 048

REACTIONS (2)
  - Depressive symptom [Recovering/Resolving]
  - Suicidal ideation [Recovered/Resolved]
